FAERS Safety Report 19794511 (Version 1)
Quarter: 2021Q3

REPORT INFORMATION
  Report Type: Spontaneous
  Country: GB (occurrence: GB)
  Receive Date: 20210906
  Receipt Date: 20210906
  Transmission Date: 20211014
  Serious: Yes (Other)
  Sender: FDA-Public Use
  Company Number: GB-ASTRAZENECA-2021A711596

PATIENT
  Age: 71 Year
  Sex: Male

DRUGS (7)
  1. EPLERENONE. [Concomitant]
     Active Substance: EPLERENONE
  2. ATORVASTATIN [Concomitant]
     Active Substance: ATORVASTATIN
     Dosage: 80.0MG UNKNOWN
  3. FORXIGA [Suspect]
     Active Substance: DAPAGLIFLOZIN
     Indication: BLOOD PRESSURE SYSTOLIC INCREASED
     Route: 048
     Dates: start: 20210819
  4. RAMIPRIL. [Concomitant]
     Active Substance: RAMIPRIL
  5. SOLUBLE ASPIRIN [Concomitant]
     Dosage: 75.0MG UNKNOWN
  6. CLOPIDOGREL [Concomitant]
     Active Substance: CLOPIDOGREL BISULFATE
     Dosage: 75.0MG UNKNOWN
  7. LANSOPRAZOLE. [Concomitant]
     Active Substance: LANSOPRAZOLE

REACTIONS (9)
  - Coronary artery occlusion [Unknown]
  - Apathy [Unknown]
  - Hypotension [Unknown]
  - Syncope [Unknown]
  - Feeling abnormal [Unknown]
  - Dyspnoea [Unknown]
  - Disturbance in attention [Unknown]
  - Fatigue [Unknown]
  - Malaise [Unknown]
